FAERS Safety Report 7674594-7 (Version None)
Quarter: 2011Q3

REPORT INFORMATION
  Report Type: 
  Country: None (occurrence: None)
  Receive Date: 20110810
  Receipt Date: 20110802
  Transmission Date: 20111222
  Serious: Yes (Death)
  Sender: FDA-Public Use
  Company Number: BE-PFIZER INC-2011174303

PATIENT
  Age: 68 Year
  Sex: Male
  Weight: 72 kg

DRUGS (7)
  1. TESTOSTERONE [Concomitant]
     Indication: HYPOGONADISM
     Dosage: 250 MG, UNK
     Dates: start: 20040802
  2. LANOXIN [Concomitant]
     Indication: CARDIAC FAILURE
     Dosage: 0.25 MG, 1X/DAY
     Dates: start: 20040802
  3. PRAVASINE [Concomitant]
     Indication: HYPERLIPIDAEMIA
     Dosage: 40 MG, 1X/DAY
     Dates: start: 20040802
  4. LODIXAL [Concomitant]
     Indication: HYPERTENSION
     Dosage: 240 MG, 1X/DAY
     Dates: start: 20040802
  5. HYDROCORTISONE [Concomitant]
     Indication: ADRENAL INSUFFICIENCY
     Dosage: 15 MG, 1X/DAY
     Dates: start: 20040802
  6. SOMATROPIN [Suspect]
     Indication: HYPOPITUITARISM
     Dosage: 0.2 MG, 1X/DAY
     Route: 058
     Dates: start: 19990713
  7. ATARAX [Concomitant]
     Indication: ANXIETY
     Dosage: 25 MG, 1X/DAY
     Dates: start: 20040802

REACTIONS (2)
  - DEATH [None]
  - SUDDEN DEATH [None]
